FAERS Safety Report 9188299 (Version 2)
Quarter: 2013Q2

REPORT INFORMATION
  Report Type: Spontaneous
  Country: US (occurrence: US)
  Receive Date: 20130325
  Receipt Date: 20130412
  Transmission Date: 20140414
  Serious: No
  Sender: FDA-Public Use
  Company Number: US-PFIZER INC-2013094302

PATIENT
  Age: 58 Year
  Sex: Female
  Weight: 113 kg

DRUGS (5)
  1. ZOLOFT [Suspect]
     Indication: MAJOR DEPRESSION
     Dosage: 50 MG, 1X/DAY
     Dates: start: 1992
  2. ZOLOFT [Suspect]
     Dosage: 100 MG, 1X/DAY
  3. QUETIAPINE [Suspect]
     Indication: MAJOR DEPRESSION
     Dosage: UNK
  4. ASPIRIN [Concomitant]
     Dosage: 81 MG, UNK
  5. IRON [Concomitant]
     Dosage: 325 MG, WEEKLY

REACTIONS (4)
  - Stress [Unknown]
  - Flatulence [Unknown]
  - Feeling abnormal [Unknown]
  - Drug ineffective [Unknown]
